FAERS Safety Report 5407044-1 (Version None)
Quarter: 2007Q3

REPORT INFORMATION
  Report Type: 
  Country: None (occurrence: None)
  Receive Date: 20070803
  Receipt Date: 20070718
  Transmission Date: 20080115
  Serious: No
  Sender: FDA-Public Use
  Company Number: ADR0822007

PATIENT
  Sex: Male

DRUGS (1)
  1. SIMVASTATIN [Suspect]
     Dosage: 40 MG,  ORAL
     Route: 048

REACTIONS (2)
  - BREAST PAIN [None]
  - CHEST DISCOMFORT [None]
